FAERS Safety Report 8457183-6 (Version None)
Quarter: 2012Q2

REPORT INFORMATION
  Report Type: 
  Country: None (occurrence: None)
  Receive Date: 20120621
  Receipt Date: 20120618
  Transmission Date: 20120825
  Serious: No
  Sender: FDA-Public Use
  Company Number: US-B.I. PHARMACEUTICALS,INC./RIDGEFIELD-2012-BP-13934BP

PATIENT
  Age: 78 Year
  Sex: Male

DRUGS (13)
  1. ZOCOR [Concomitant]
     Indication: BLOOD CHOLESTEROL INCREASED
     Dosage: 10 MG
     Route: 048
     Dates: start: 20070101
  2. PREDNISONE TAB [Concomitant]
     Indication: ARTHRITIS
     Dosage: 5 MG
     Route: 048
     Dates: start: 20070101
  3. ACETAMINOPHEN [Concomitant]
     Indication: PAIN
     Dates: start: 20070101
  4. DIOVAN [Concomitant]
     Indication: HYPERTENSION
     Dosage: 320 MG
     Route: 048
     Dates: start: 20070101
  5. OXYBUTYNIN [Concomitant]
     Indication: MICTURITION URGENCY
     Dosage: 10 MG
     Route: 048
     Dates: start: 20070101
  6. PROTOPIC [Concomitant]
     Indication: RADIATION SKIN INJURY
     Route: 061
  7. TRAVATAN Z [Concomitant]
     Indication: GLAUCOMA
     Dates: start: 20070101
  8. ASPIRIN [Concomitant]
     Indication: ATRIAL FIBRILLATION
     Dosage: 81 MG
     Route: 048
     Dates: start: 20070101
  9. COREG [Concomitant]
     Indication: ATRIAL FIBRILLATION
     Dosage: 6.25 MG
     Route: 048
     Dates: start: 20070101
  10. NITROGLYCERIN [Concomitant]
     Indication: ANGINA PECTORIS
     Dates: start: 20070101
  11. ALFUZOSIN HCL [Concomitant]
     Indication: URINARY RETENTION
     Dosage: 10 MG
     Route: 048
     Dates: start: 20070101
  12. PRADAXA [Suspect]
     Indication: ATRIAL FIBRILLATION
     Dosage: 300 MG
     Route: 048
     Dates: start: 20100101
  13. ZANTAC [Concomitant]
     Indication: GASTROOESOPHAGEAL REFLUX DISEASE
     Dates: start: 20070101

REACTIONS (1)
  - FOREIGN BODY [None]
